FAERS Safety Report 8755932 (Version 3)
Quarter: 2012Q4

REPORT INFORMATION
  Report Type: Spontaneous
  Country: US (occurrence: None)
  Receive Date: 20120814
  Receipt Date: 20121217
  Transmission Date: 20130627
  Serious: Yes (Hospitalization, Other)
  Sender: FDA-Public Use
  Company Number: ADR-2012-01468

PATIENT
  Sex: Male

DRUGS (2)
  1. BACLOFEN [Suspect]
     Indication: SPASTICITY
     Dosage: 550 (see B5)
  2. BACLOFEN [Suspect]
     Indication: SPASTICITY
     Dosage: 550 (see B5)

REACTIONS (10)
  - Withdrawal syndrome [None]
  - Formication [None]
  - Device issue [None]
  - Vomiting [None]
  - Cerebrospinal fluid leakage [None]
  - Hypoaesthesia [None]
  - Paraesthesia [None]
  - Headache [None]
  - Pain in extremity [None]
  - Pain in extremity [None]
